FAERS Safety Report 21520256 (Version 1)
Quarter: 2022Q4

REPORT INFORMATION
  Report Type: Spontaneous
  Country: US (occurrence: US)
  Receive Date: 20221028
  Receipt Date: 20221028
  Transmission Date: 20230113
  Serious: No
  Sender: FDA-Public Use
  Company Number: US-BRISTOL-MYERS SQUIBB COMPANY-2022-125818

PATIENT
  Age: 81 Year
  Sex: Male

DRUGS (1)
  1. LENALIDOMIDE [Suspect]
     Active Substance: LENALIDOMIDE
     Indication: Plasma cell myeloma
     Route: 048
     Dates: start: 20221002

REACTIONS (6)
  - Dehydration [Unknown]
  - Asthenia [Unknown]
  - Fall [Unknown]
  - Blood potassium increased [Unknown]
  - Blood sodium decreased [Not Recovered/Not Resolved]
  - Off label use [Not Recovered/Not Resolved]
